FAERS Safety Report 7893157-1 (Version None)
Quarter: 2011Q4

REPORT INFORMATION
  Report Type: 
  Country: None (occurrence: None)
  Receive Date: 20111104
  Receipt Date: 20111101
  Transmission Date: 20120403
  Serious: Yes (Other)
  Sender: FDA-Public Use
  Company Number: GB-EISAI INC-E2090-01823-SPO-GB

PATIENT
  Age: 40 Year
  Sex: Male
  Weight: 89 kg

DRUGS (21)
  1. ADAPALENE [Concomitant]
     Indication: FOLLICULITIS
  2. ZONISAMIDE [Suspect]
     Route: 048
     Dates: start: 20110901, end: 20110901
  3. ZONISAMIDE [Suspect]
     Route: 048
     Dates: start: 20110901, end: 20111001
  4. DIAZEPAM [Concomitant]
  5. ERYTHROMYCIN [Concomitant]
     Indication: FOLLICULITIS
  6. NAPROXEN [Concomitant]
     Indication: BACK PAIN
     Dosage: 250 MG
  7. OMEPRAZOLE [Concomitant]
     Indication: DYSPEPSIA
  8. OXCARBAZEPINE [Concomitant]
  9. SILDENAFIL [Concomitant]
     Indication: ERECTILE DYSFUNCTION
     Dosage: 100 MG
  10. ZONISAMIDE [Suspect]
     Route: 048
     Dates: start: 20110916, end: 20110901
  11. BETAMETHASONE AND FUSIDIC ACID [Concomitant]
     Indication: FOLLICULITIS
  12. OMEPRAZOLE [Concomitant]
     Indication: PROPHYLAXIS
  13. CITALOPRAM HYDROBROMIDE [Concomitant]
     Indication: ANXIETY
  14. ZOPICLONE [Concomitant]
     Indication: INSOMNIA
  15. ZONISAMIDE [Suspect]
     Route: 048
     Dates: start: 20111001
  16. CHLORHEXIDINE GLUCONATE [Concomitant]
     Indication: FOLLICULITIS
  17. PHENOXYMETHYL PENICILLIN [Concomitant]
     Indication: TONSILLITIS
  18. ZOPICLONE [Concomitant]
     Indication: ANXIETY
     Dosage: 3.75 MG
  19. CLOBAZAM [Concomitant]
     Dosage: 10 MG
  20. ERYTHROMYCIN [Concomitant]
     Indication: ACNE
  21. CETIRIZINE HCL [Concomitant]
     Indication: RHINITIS

REACTIONS (3)
  - AGGRESSION [None]
  - IRRITABILITY [None]
  - PERSONALITY CHANGE [None]
